FAERS Safety Report 22524600 (Version 1)
Quarter: 2023Q2

REPORT INFORMATION
  Report Type: Spontaneous
  Country: KR (occurrence: KR)
  Receive Date: 20230606
  Receipt Date: 20230606
  Transmission Date: 20230721
  Serious: Yes (Hospitalization)
  Sender: FDA-Public Use
  Company Number: KR-ORGANON-O2305KOR003103

PATIENT
  Age: 73 Year
  Sex: Female
  Weight: 50 kg

DRUGS (8)
  1. COZAAR [Suspect]
     Active Substance: LOSARTAN POTASSIUM
     Dosage: UNK, FILM-COATED TABLET
     Route: 048
     Dates: start: 20190508
  2. ROSUVASTATIN CALCIUM [Concomitant]
     Active Substance: ROSUVASTATIN CALCIUM
     Dosage: UNK
     Route: 048
     Dates: start: 20190502
  3. RIVAROXABAN [Concomitant]
     Active Substance: RIVAROXABAN
     Dosage: UNK
     Route: 048
     Dates: start: 20190502, end: 20190805
  4. TELMISARTAN AND AMLODIPINE [Concomitant]
     Active Substance: AMLODIPINE BESYLATE\TELMISARTAN
     Dosage: UNK
     Route: 048
     Dates: start: 20190730
  5. CHOLINE ALFOSCERATE [Concomitant]
     Active Substance: CHOLINE ALFOSCERATE
     Dosage: UNK, ROUTE: VEIN
     Dates: start: 20190730
  6. ESCITALOPRAM OXALATE [Concomitant]
     Active Substance: ESCITALOPRAM OXALATE
     Dosage: UNK
     Route: 048
     Dates: start: 20190730
  7. ASPIRIN [Concomitant]
     Active Substance: ASPIRIN
     Dosage: UNK, FORMULATION: ENTERIC FILM-COATED TABLET
     Route: 048
     Dates: start: 20190805, end: 20190807
  8. CLOPIDOGREL BISULFATE [Concomitant]
     Active Substance: CLOPIDOGREL BISULFATE
     Dosage: UNK
     Route: 048
     Dates: start: 20190805, end: 20190819

REACTIONS (1)
  - Angina pectoris [Recovered/Resolved]

NARRATIVE: CASE EVENT DATE: 20190806
